FAERS Safety Report 19412729 (Version 1)
Quarter: 2021Q2

REPORT INFORMATION
  Report Type: Spontaneous
  Country: US (occurrence: US)
  Receive Date: 20210614
  Receipt Date: 20210614
  Transmission Date: 20210717
  Serious: No
  Sender: FDA-Public Use
  Company Number: US-PFIZER INC-2021299341

PATIENT
  Age: 61 Year

DRUGS (1)
  1. LINEZOLID. [Suspect]
     Active Substance: LINEZOLID
     Indication: DERMATITIS INFECTED
     Dosage: UNK

REACTIONS (4)
  - Hypoaesthesia [Unknown]
  - Diarrhoea [Unknown]
  - Gait inability [Unknown]
  - Temporomandibular joint syndrome [Unknown]
